FAERS Safety Report 4919466-3 (Version None)
Quarter: 2006Q1

REPORT INFORMATION
  Report Type: 
  Country: None (occurrence: None)
  Receive Date: 20060222
  Receipt Date: 20050930
  Transmission Date: 20060701
  Serious: Yes (Hospitalization)
  Sender: FDA-Public Use
  Company Number: PR-MERCK-0510USA01592

PATIENT
  Sex: Male
  Weight: 79 kg

DRUGS (2)
  1. VIOXX [Suspect]
     Indication: ANAL INFECTION
     Route: 048
  2. VIOXX [Suspect]
     Route: 048

REACTIONS (4)
  - HYPERTENSION [None]
  - MYOCARDIAL INFARCTION [None]
  - OFF LABEL USE [None]
  - OVERDOSE [None]
